FAERS Safety Report 6377031-8 (Version None)
Quarter: 2009Q3

REPORT INFORMATION
  Report Type: 
  Country: None (occurrence: None)
  Receive Date: 20090925
  Receipt Date: 20090911
  Transmission Date: 20100115
  Serious: Yes (Other)
  Sender: FDA-Public Use
  Company Number: US-JNJFOC-20090904396

PATIENT
  Sex: Male

DRUGS (3)
  1. PREZISTA [Suspect]
     Indication: HIV INFECTION
     Route: 048
  2. RITONAVIR [Suspect]
     Indication: HIV INFECTION
     Route: 065
  3. TRUVADA [Concomitant]
     Indication: HIV INFECTION
     Route: 065

REACTIONS (1)
  - NEUTROPENIA [None]
